FAERS Safety Report 8738157 (Version 2)
Quarter: 2013Q4

REPORT INFORMATION
  Report Type: Spontaneous
  Country: GB (occurrence: GB)
  Receive Date: 20120823
  Receipt Date: 20131031
  Transmission Date: 20140711
  Serious: Yes (Life-Threatening)
  Sender: FDA-Public Use
  Company Number: GB-009507513-1208GBR006083

PATIENT
  Age: 59 Year
  Sex: Female

DRUGS (23)
  1. ISENTRESS [Suspect]
     Indication: HIV INFECTION
     Dosage: 800 MG, BID
     Route: 048
     Dates: start: 20120105, end: 20120326
  2. BISOPROLOL [Concomitant]
     Dosage: 2.5 MG, BID
     Route: 048
     Dates: start: 20120320, end: 20120413
  3. CACIT VITAMINE D3 [Concomitant]
     Dosage: 1 DF, QD
     Route: 048
     Dates: start: 20120322
  4. CO-TRIMOXAZOLE [Concomitant]
     Dosage: 480 MG, QD
     Route: 048
     Dates: start: 20120416
  5. DEXAMETHASONE [Concomitant]
     Indication: LYMPHADENOPATHY
     Dosage: 4.8 MG, TID
     Route: 042
     Dates: start: 20120512
  6. GALFER [Concomitant]
     Dosage: 280 MG, QD
     Route: 048
     Dates: start: 20120522
  7. GALFER [Concomitant]
     Dosage: 210 MG, BID
  8. GENTAMICINE [Concomitant]
     Dosage: 240 MG, QD
     Route: 042
     Dates: start: 20120327, end: 20120329
  9. HEPSAL [Concomitant]
     Dosage: 50 DF, UNK
     Route: 042
     Dates: start: 20120330
  10. MEROPENEM [Concomitant]
     Dosage: 1 G, TID
     Route: 042
     Dates: start: 20120322, end: 20120405
  11. MIRTAZAPINE [Concomitant]
     Dosage: 30 MG, QD
     Route: 048
     Dates: start: 20120320
  12. MOXIFLOXACIN HYDROCHLORIDE [Concomitant]
     Indication: MENINGITIS TUBERCULOUS
     Dosage: 400 MG, QD
     Route: 048
     Dates: start: 20120203
  13. NYSTATIN [Concomitant]
     Dosage: 1 ML, QID
     Route: 048
     Dates: start: 20120412, end: 20120422
  14. OMEPRAZOLE [Concomitant]
     Dosage: 40 MG, QD
     Route: 048
     Dates: start: 20120501
  15. OMEPRAZOLE [Concomitant]
     Dosage: 40 MG, BID
     Route: 042
     Dates: start: 20120320, end: 20120412
  16. PARACETAMOL [Concomitant]
     Dosage: 1 G, QID
  17. RIFAMPICIN [Concomitant]
     Indication: MENINGITIS TUBERCULOUS
     Dosage: 600 MG, QD
     Route: 048
     Dates: start: 20111127
  18. TARGOCID [Concomitant]
     Dosage: 800 MG, QD
     Route: 042
     Dates: start: 20120507, end: 20120518
  19. THIAMINE [Concomitant]
     Dosage: 100 MG, TID
     Route: 048
     Dates: start: 20120320
  20. TRIZIVIR [Concomitant]
     Indication: HIV INFECTION
     Dosage: 1 DF, BID
     Route: 048
     Dates: start: 20120426
  21. TRUVADA [Concomitant]
     Indication: HIV INFECTION
     Dosage: 1 DF, QD
     Route: 048
     Dates: start: 20120106, end: 20120326
  22. VALCYTE [Concomitant]
     Indication: CYTOMEGALOVIRUS INFECTION
     Dosage: 900 MG, QD
     Route: 048
     Dates: start: 20120112, end: 20120325
  23. ZOPICLONE [Concomitant]
     Dosage: 3.75 MG, QD
     Route: 048
     Dates: start: 20120409

REACTIONS (1)
  - Gastric haemorrhage [Recovered/Resolved]
